FAERS Safety Report 4396227-8 (Version None)
Quarter: 2004Q2

REPORT INFORMATION
  Report Type: 
  Country: None (occurrence: None)
  Receive Date: 20040621
  Receipt Date: 20031121
  Transmission Date: 20050107
  Serious: Yes (Death)
  Sender: FDA-Public Use
  Company Number: USA-2003-0010968

PATIENT
  Age: 26 Year
  Sex: Male
  Weight: 86.8 kg

DRUGS (6)
  1. OXYCONTIN HYDROCHLORIDE (SIMILAR TO NDA 20-553) (OXYCODONE HYDROCHLORI [Suspect]
  2. HYDROCODONE BITARTRATE [Suspect]
  3. COCAINE (COCAINE) [Suspect]
  4. ACETAMINOPHEN [Suspect]
  5. NICOTINE [Suspect]
  6. BENZODIAZEPINE [Suspect]

REACTIONS (2)
  - ACCIDENTAL OVERDOSE [None]
  - MULTIPLE DRUG OVERDOSE [None]
